FAERS Safety Report 11963991 (Version 1)
Quarter: 2016Q1

REPORT INFORMATION
  Report Type: Spontaneous
  Country: MX (occurrence: None)
  Receive Date: 20160121
  Receipt Date: 20160121
  Transmission Date: 20160526
  Serious: No
  Sender: FDA-Public Use
  Company Number: None

PATIENT
  Age: 43 Year
  Sex: Female
  Weight: 120 kg

DRUGS (1)
  1. OMEPRAZOLE 20MG [Suspect]
     Active Substance: OMEPRAZOLE
     Indication: GASTRITIS
     Dosage: 2 TWICE DAILY BOCA
     Dates: start: 20160120

REACTIONS (13)
  - Muscular weakness [None]
  - Fatigue [None]
  - Dysphagia [None]
  - Pain in extremity [None]
  - Arthralgia [None]
  - Blood glucose increased [None]
  - Headache [None]
  - Asthenia [None]
  - Pain in jaw [None]
  - Nervous system disorder [None]
  - Dementia [None]
  - Muscle spasms [None]
  - Hypoaesthesia [None]

NARRATIVE: CASE EVENT DATE: 20160120
